FAERS Safety Report 21840923 (Version 3)
Quarter: 2024Q2

REPORT INFORMATION
  Report Type: Report from Study
  Country: RU (occurrence: RU)
  Receive Date: 20230110
  Receipt Date: 20240520
  Transmission Date: 20240715
  Serious: Yes (Hospitalization, Other)
  Sender: FDA-Public Use
  Company Number: RU-ABBVIE-4261879

PATIENT
  Age: 61 Year
  Sex: Female
  Weight: 119 kg

DRUGS (3)
  1. UPADACITINIB [Suspect]
     Active Substance: UPADACITINIB
     Indication: Rheumatoid arthritis
     Route: 048
     Dates: start: 20211228, end: 20221130
  2. HYDROXYCHLOROQUINE [Concomitant]
     Active Substance: HYDROXYCHLOROQUINE
     Indication: Rheumatoid arthritis
     Route: 048
     Dates: start: 20170301
  3. CALCIUM CARBONATE [Concomitant]
     Active Substance: CALCIUM CARBONATE
     Indication: Prophylaxis
     Route: 048
     Dates: start: 20111101

REACTIONS (1)
  - Medical device site joint infection [Not Recovered/Not Resolved]

NARRATIVE: CASE EVENT DATE: 20221130
